FAERS Safety Report 8849128 (Version 1)
Quarter: 2012Q4

REPORT INFORMATION
  Report Type: Spontaneous
  Country: US (occurrence: None)
  Receive Date: 20121017
  Receipt Date: 20121017
  Transmission Date: 20130627
  Serious: Yes (Life-Threatening, Hospitalization, Disabling)
  Sender: FDA-Public Use
  Company Number: None

PATIENT
  Age: 48 Year
  Sex: Female
  Weight: 66.68 kg

DRUGS (1)
  1. RISPERIDONE [Suspect]
     Indication: PARANOID SCHIZOPHRENIA
     Dates: start: 20040101, end: 20050101

REACTIONS (3)
  - Aggression [None]
  - Delusion [None]
  - Paranoia [None]
